FAERS Safety Report 22177627 (Version 1)
Quarter: 2023Q2

REPORT INFORMATION
  Report Type: Spontaneous
  Country: FR (occurrence: FR)
  Receive Date: 20230405
  Receipt Date: 20230405
  Transmission Date: 20230721
  Serious: Yes (Hospitalization)
  Sender: FDA-Public Use
  Company Number: None

PATIENT
  Age: 45 Year
  Sex: Male

DRUGS (3)
  1. ZYPADHERA [Suspect]
     Active Substance: OLANZAPINE PAMOATE
     Indication: Affective disorder
     Dosage: 1 DOSAGE FORM, UNKNOWN
     Route: 030
     Dates: start: 20230220
  2. ZYPADHERA [Suspect]
     Active Substance: OLANZAPINE PAMOATE
     Indication: Affective disorder
     Dosage: 1 DOSAGE FORM, UNKNOWN
     Route: 030
     Dates: start: 20230220
  3. ZYPADHERA [Suspect]
     Active Substance: OLANZAPINE PAMOATE
     Indication: Affective disorder
     Dosage: 1 DOSAGE FORM, UNKNOWN
     Route: 030
     Dates: start: 20230220

REACTIONS (2)
  - Wrong schedule [Recovered/Resolved]
  - Restlessness [Recovered/Resolved]

NARRATIVE: CASE EVENT DATE: 20230220
